FAERS Safety Report 18330668 (Version 1)
Quarter: 2020Q3

REPORT INFORMATION
  Report Type: Spontaneous
  Country: PT (occurrence: PT)
  Receive Date: 20200930
  Receipt Date: 20200930
  Transmission Date: 20201103
  Serious: Yes (Other)
  Sender: FDA-Public Use
  Company Number: PT-GILEAD-2020-0496242

PATIENT
  Age: 51 Year
  Sex: Male

DRUGS (3)
  1. DOLUTEGRAVIR [Concomitant]
     Active Substance: DOLUTEGRAVIR
  2. DARUNAVIR [Concomitant]
     Active Substance: DARUNAVIR
  3. VIREAD [Suspect]
     Active Substance: TENOFOVIR DISOPROXIL FUMARATE
     Indication: HIV INFECTION WHO CLINICAL STAGE II
     Route: 065

REACTIONS (4)
  - Treatment noncompliance [Unknown]
  - Cholangiolitis [Unknown]
  - Hepatic function abnormal [Unknown]
  - Virologic failure [Unknown]
